FAERS Safety Report 9061705 (Version 4)
Quarter: 2016Q2

REPORT INFORMATION
  Report Type: Report from Study
  Country: CA (occurrence: CA)
  Receive Date: 20130204
  Receipt Date: 20160630
  Transmission Date: 20160815
  Serious: Yes (Other)
  Sender: FDA-Public Use
  Company Number: PHHY2013CA009638

PATIENT
  Age: 78 Year
  Sex: Female

DRUGS (6)
  1. HYDROCHLOROTHIAZIDE. [Concomitant]
     Active Substance: HYDROCHLOROTHIAZIDE
     Indication: PRODUCT USED FOR UNKNOWN INDICATION
     Route: 065
  2. BABY ASPIRIN [Concomitant]
     Active Substance: ASPIRIN
     Indication: PRODUCT USED FOR UNKNOWN INDICATION
     Route: 065
  3. SANDOSTATIN LAR DEPOT [Suspect]
     Active Substance: OCTREOTIDE ACETATE
     Indication: NEUROENDOCRINE CARCINOMA METASTATIC
     Dosage: 30 MG, QMO
     Route: 030
     Dates: start: 20110328
  4. PLAVIX [Concomitant]
     Active Substance: CLOPIDOGREL BISULFATE
     Indication: PRODUCT USED FOR UNKNOWN INDICATION
     Dosage: 75 MG, EVERY DAY
     Route: 065
  5. ALOPURINOL [Concomitant]
     Active Substance: ALLOPURINOL
     Indication: PRODUCT USED FOR UNKNOWN INDICATION
     Route: 065
  6. AVAPRO [Concomitant]
     Active Substance: IRBESARTAN
     Indication: PRODUCT USED FOR UNKNOWN INDICATION
     Route: 065

REACTIONS (14)
  - Second primary malignancy [Unknown]
  - Oedema peripheral [Unknown]
  - Small intestine carcinoma [Unknown]
  - Chest pain [Recovered/Resolved]
  - Heart rate irregular [Unknown]
  - Cardiac murmur [Unknown]
  - Arthralgia [Unknown]
  - Angina pectoris [Unknown]
  - Blood pressure systolic decreased [Unknown]
  - Respiratory disorder [Unknown]
  - Blood pressure diastolic decreased [Not Recovered/Not Resolved]
  - Skin cancer [Unknown]
  - Blood pressure systolic increased [Unknown]
  - Cataract [Unknown]

NARRATIVE: CASE EVENT DATE: 20130812
